FAERS Safety Report 5060754-0 (Version None)
Quarter: 2006Q3

REPORT INFORMATION
  Report Type: 
  Country: None (occurrence: None)
  Receive Date: 20060721
  Receipt Date: 20060721
  Transmission Date: 20061208
  Serious: Yes (Other)
  Sender: FDA-Public Use
  Company Number: None

PATIENT
  Age: 35 Year
  Sex: Female
  Weight: 56.6996 kg

DRUGS (1)
  1. TEQUIN [Suspect]
     Indication: SINUSITIS
     Dosage: 1 TAB BY MOUTH  DAILY  PO  10 DOSES
     Route: 048
     Dates: start: 20060404, end: 20060413

REACTIONS (10)
  - ANXIETY [None]
  - ARTHRALGIA [None]
  - DIZZINESS [None]
  - DYSPNOEA [None]
  - HEADACHE [None]
  - HEART RATE INCREASED [None]
  - INSOMNIA [None]
  - MUSCLE TWITCHING [None]
  - MYALGIA [None]
  - PALPITATIONS [None]
